FAERS Safety Report 4867887-X (Version None)
Quarter: 2005Q4

REPORT INFORMATION
  Report Type: 
  Country: None (occurrence: None)
  Receive Date: 20051227
  Receipt Date: 20051219
  Transmission Date: 20060501
  Serious: Yes (Hospitalization)
  Sender: FDA-Public Use
  Company Number: GXKR2005DE02081

PATIENT
  Age: 50 Year
  Sex: Female
  Weight: 78.5 kg

DRUGS (2)
  1. CO-TRIMOXAZOLE (NGX)(SULFAMETHOXAZOLE, TRIMETHOPRIM) [Suspect]
     Indication: URINARY TRACT INFECTION
  2. TRIAMTERENE(TRIAMTERENE) [Suspect]
     Indication: OEDEMA PERIPHERAL

REACTIONS (7)
  - ANAEMIA MACROCYTIC [None]
  - BLOOD DISORDER [None]
  - FOLATE DEFICIENCY [None]
  - HYPERCHROMIC ANAEMIA [None]
  - LEUKOPENIA [None]
  - MARROW HYPERPLASIA [None]
  - THROMBOCYTOPENIA [None]
